FAERS Safety Report 9449240 (Version 2)
Quarter: 2015Q4

REPORT INFORMATION
  Report Type: Spontaneous
  Country: US (occurrence: US)
  Receive Date: 20151221
  Receipt Date: 20151221
  Transmission Date: 20160305
  Serious: Yes (Hospitalization, Other)
  Sender: FDA-Public Use
  Company Number: US-GLAXOSMITHKLINE-A1036315A

PATIENT
  Age: 76 Year
  Sex: Male

DRUGS (18)
  1. REQUIP [Suspect]
     Active Substance: ROPINIROLE HYDROCHLORIDE
     Indication: RESTLESS LEGS SYNDROME
     Dosage: UNK UNK, U
     Route: 048
  2. TRAMADOL. [Suspect]
     Active Substance: TRAMADOL
     Indication: PAIN
  3. FUROSEMIDE. [Concomitant]
     Active Substance: FUROSEMIDE
  4. LEVOTHYROXINE. [Concomitant]
     Active Substance: LEVOTHYROXINE
  5. LORTAB (LORATADINE) [Suspect]
     Active Substance: LORATADINE
     Indication: PAIN
  6. POTASSIUM CHLORIDE. [Concomitant]
     Active Substance: POTASSIUM CHLORIDE
  7. DIGOXIN. [Concomitant]
     Active Substance: DIGOXIN
  8. METOLAZONE. [Concomitant]
     Active Substance: METOLAZONE
  9. NOVOLOG [Concomitant]
     Active Substance: INSULIN ASPART
  10. REQUIP [Suspect]
     Active Substance: ROPINIROLE HYDROCHLORIDE
     Dosage: 2 MG, UNK
  11. LORTAB (LORATADINE) [Concomitant]
  12. GLIMEPIRIDE. [Concomitant]
     Active Substance: GLIMEPIRIDE
  13. METOPROLOL XL [Concomitant]
     Active Substance: METOPROLOL
  14. COMBIVENT [Concomitant]
     Active Substance: ALBUTEROL SULFATE\IPRATROPIUM BROMIDE
  15. NASONEX [Concomitant]
     Active Substance: MOMETASONE FUROATE
  16. SERTRALINE [Concomitant]
     Active Substance: SERTRALINE HYDROCHLORIDE
  17. OXYCODONE [Concomitant]
     Active Substance: OXYCODONE
  18. REQUIP XL [Suspect]
     Active Substance: ROPINIROLE HYDROCHLORIDE
     Indication: RESTLESS LEGS SYNDROME
     Route: 048
     Dates: start: 201306

REACTIONS (15)
  - Bronchitis [Not Recovered/Not Resolved]
  - Pericardial effusion [Unknown]
  - Cardiac failure congestive [Not Recovered/Not Resolved]
  - Renal cyst [Not Recovered/Not Resolved]
  - Gout [Unknown]
  - Abdominal pain upper [Not Recovered/Not Resolved]
  - Back pain [Not Recovered/Not Resolved]
  - Restless legs syndrome [Unknown]
  - Drug interaction [Unknown]
  - Dyspnoea [Not Recovered/Not Resolved]
  - Drug ineffective [Not Recovered/Not Resolved]
  - Pulmonary oedema [Unknown]
  - Abasia [Unknown]
  - Pruritus [Unknown]
  - Sepsis [Unknown]

NARRATIVE: CASE EVENT DATE: 20150924
